FAERS Safety Report 4334774-5 (Version None)
Quarter: 2004Q2

REPORT INFORMATION
  Report Type: 
  Country: None (occurrence: None)
  Receive Date: 20040407
  Receipt Date: 20040407
  Transmission Date: 20050107
  Serious: Yes (Disabling)
  Sender: FDA-Public Use
  Company Number: None

PATIENT
  Age: 42 Year
  Sex: Male
  Weight: 60.3284 kg

DRUGS (1)
  1. LINEZOLID 600 MG 1 PO BID [Suspect]
     Indication: EXTRADURAL ABSCESS
     Dosage: 600 MG  PO BID
     Route: 048
     Dates: start: 20020201, end: 20020312

REACTIONS (2)
  - PAIN [None]
  - TREMOR [None]
